FAERS Safety Report 16949954 (Version 1)
Quarter: 2019Q4

REPORT INFORMATION
  Report Type: Spontaneous
  Country: GB (occurrence: GB)
  Receive Date: 20191023
  Receipt Date: 20191023
  Transmission Date: 20200122
  Serious: Yes (Hospitalization, Other)
  Sender: FDA-Public Use
  Company Number: GB-TEVA-195995ISR

PATIENT
  Age: 42 Year
  Sex: Male

DRUGS (3)
  1. SPIRONOLACTONE. [Suspect]
     Active Substance: SPIRONOLACTONE
     Indication: FEMINISATION ACQUIRED
     Dosage: 200 MILLIGRAM DAILY;
     Route: 048
  2. ESTRADIOL. [Suspect]
     Active Substance: ESTRADIOL
     Indication: FEMINISATION ACQUIRED
  3. ETHINYLESTRADIOL [Suspect]
     Active Substance: ETHINYL ESTRADIOL
     Indication: FEMINISATION ACQUIRED
     Dosage: 30 MICROGRAM DAILY;
     Route: 048

REACTIONS (2)
  - Pulmonary embolism [Unknown]
  - Self-medication [Unknown]
